FAERS Safety Report 26071868 (Version 2)
Quarter: 2025Q4

REPORT INFORMATION
  Report Type: Spontaneous
  Country: TW (occurrence: TW)
  Receive Date: 20251120
  Receipt Date: 20251126
  Transmission Date: 20260118
  Serious: Yes (Life-Threatening, Other)
  Sender: PFIZER
  Company Number: TW-PFIZER INC-PV202500135892

PATIENT
  Age: 83 Year
  Sex: Male

DRUGS (2)
  1. BEVACIZUMAB [Suspect]
     Active Substance: BEVACIZUMAB
     Indication: Hepatocellular carcinoma
     Dosage: 500 MG,TRI-WEEKLY, FOR 34 CYCLES
  2. ATEZOLIZUMAB [Suspect]
     Active Substance: ATEZOLIZUMAB
     Indication: Hepatocellular carcinoma
     Dosage: 1200 MG, TRI-WEEKLY FOR 34 CYCLES

REACTIONS (2)
  - Portal hypertension [Unknown]
  - Off label use [Unknown]
